FAERS Safety Report 4419834-2 (Version None)
Quarter: 2004Q2

REPORT INFORMATION
  Report Type: 
  Country: None (occurrence: None)
  Receive Date: 20040622
  Receipt Date: 20031013
  Transmission Date: 20050107
  Serious: Yes (Hospitalization)
  Sender: FDA-Public Use
  Company Number: 349284

PATIENT
  Age: 73 Year
  Sex: Female

DRUGS (5)
  1. XELODA [Suspect]
     Indication: BREAST CANCER
     Dosage: 1000 MG 2 PER DAY ORAL
     Route: 048
     Dates: start: 20030908, end: 20030929
  2. TAMOXIFEN CITRATE [Concomitant]
  3. SINGULAIR [Concomitant]
  4. LESCOL [Concomitant]
  5. INHALER NOS (INHALANT NOS) [Concomitant]

REACTIONS (2)
  - CONDITION AGGRAVATED [None]
  - DIZZINESS [None]
